FAERS Safety Report 5138862-5 (Version None)
Quarter: 2006Q4

REPORT INFORMATION
  Report Type: 
  Country: None (occurrence: None)
  Receive Date: 20061030
  Receipt Date: 20060505
  Transmission Date: 20070319
  Serious: No
  Sender: FDA-Public Use
  Company Number: US-GLAXOSMITHKLINE-A0604486A

PATIENT
  Sex: Male

DRUGS (5)
  1. ADVAIR HFA [Suspect]
     Indication: ASTHMA
     Route: 055
  2. SPIRIVA [Concomitant]
  3. ALBUTEROL [Concomitant]
  4. UNKNOWN [Concomitant]
  5. LOVASTATIN [Concomitant]

REACTIONS (2)
  - DIZZINESS [None]
  - EPISTAXIS [None]
